FAERS Safety Report 7683308-6 (Version None)
Quarter: 2011Q3

REPORT INFORMATION
  Report Type: 
  Country: None (occurrence: None)
  Receive Date: 20110815
  Receipt Date: 20110802
  Transmission Date: 20111222
  Serious: Yes (Other)
  Sender: FDA-Public Use
  Company Number: FR-GLAXOSMITHKLINE-B0736731A

PATIENT
  Sex: Female
  Weight: 64.1 kg

DRUGS (9)
  1. ARIXTRA [Suspect]
     Indication: THROMBOSIS PROPHYLAXIS
     Dosage: 2.5MG PER DAY
     Dates: start: 20110523, end: 20110605
  2. ACETAMINOPHEN AND TRAMADOL HCL [Concomitant]
     Dosage: 37.5MG AT NIGHT
  3. TORENTAL [Concomitant]
     Dosage: 400MG THREE TIMES PER DAY
     Route: 048
  4. ACETAMINOPHEN [Concomitant]
     Dosage: 500MG TWICE PER DAY
  5. OMEPRAZOLE [Concomitant]
     Dosage: 20MG AT NIGHT
     Route: 048
  6. PLAVIX [Concomitant]
     Dosage: 75MG PER DAY
     Dates: start: 20110523
  7. STABLON [Concomitant]
     Dosage: 12.5MG TWICE PER DAY
     Route: 048
  8. ZOCOR [Concomitant]
     Dosage: 20MG AT NIGHT
     Route: 048
  9. IRBESARTAN [Concomitant]
     Dosage: 150MG IN THE MORNING
     Route: 048

REACTIONS (1)
  - HAEMORRHAGIC DISORDER [None]
